FAERS Safety Report 18604327 (Version 2)
Quarter: 2022Q1

REPORT INFORMATION
  Report Type: Spontaneous
  Country: CH (occurrence: CH)
  Receive Date: 20201211
  Receipt Date: 20220202
  Transmission Date: 20220424
  Serious: Yes (Hospitalization, Other)
  Sender: FDA-Public Use
  Company Number: CH-SM-2020-17926

PATIENT
  Age: 79 Year
  Sex: Female

DRUGS (16)
  1. VANCOCIN [Suspect]
     Active Substance: VANCOMYCIN HYDROCHLORIDE
     Dosage: 2 GRAM DAILY;
     Route: 042
     Dates: start: 20190823, end: 20190912
  2. VANCOCIN [Suspect]
     Active Substance: VANCOMYCIN HYDROCHLORIDE
     Dosage: 2 GRAM DAILY;
     Route: 042
     Dates: start: 20190918, end: 20190920
  3. CUBICIN [Suspect]
     Active Substance: DAPTOMYCIN
     Dosage: 500 MILLIGRAM DAILY;
     Route: 042
     Dates: start: 20190920, end: 20191028
  4. ENTOCORT [Concomitant]
     Active Substance: BUDESONIDE
     Route: 048
  5. KCL HAUSMANN [Concomitant]
     Route: 048
  6. POTASSIUM CHLORIDE [Concomitant]
     Active Substance: POTASSIUM CHLORIDE
     Route: 048
  7. FLUNITRAZEPAM [Concomitant]
     Active Substance: FLUNITRAZEPAM
     Dosage: 1 MILLIGRAM DAILY;
     Route: 048
  8. PREDNISOLONE [Concomitant]
     Active Substance: PREDNISOLONE
     Route: 048
  9. AMPHO-MORONAL [Concomitant]
     Active Substance: AMPHOTERICIN B
     Route: 002
  10. TIMOLOL MALEATE\TRAVOPROST [Concomitant]
     Active Substance: TIMOLOL MALEATE\TRAVOPROST
     Route: 047
  11. METRONIDAZOLE [Concomitant]
     Active Substance: METRONIDAZOLE
     Dates: start: 20190819, end: 20190821
  12. CEFUROXIME [Concomitant]
     Active Substance: CEFUROXIME
     Dates: start: 20190819, end: 20190821
  13. AUGMENTIN [Concomitant]
     Active Substance: AMOXICILLIN\CLAVULANATE POTASSIUM
     Dates: start: 20190823, end: 20190827
  14. RIFAMPICIN LABATEC [Concomitant]
     Dates: start: 20190829, end: 20190920
  15. RIFAMPICIN LABATEC [Concomitant]
     Dates: start: 20190925, end: 20191028
  16. FUCIDIN NATRIUM [Concomitant]
     Dates: start: 20190912, end: 20190917

REACTIONS (2)
  - Drug reaction with eosinophilia and systemic symptoms [Recovered/Resolved]
  - Pneumonitis [Recovered/Resolved]

NARRATIVE: CASE EVENT DATE: 20190901
